FAERS Safety Report 16300311 (Version 2)
Quarter: 2019Q2

REPORT INFORMATION
  Report Type: Report from Study
  Country: FR (occurrence: FR)
  Receive Date: 20190510
  Receipt Date: 20190530
  Transmission Date: 20190711
  Serious: Yes (Death, Other)
  Sender: FDA-Public Use
  Company Number: FR-JAZZ-2019-FR-006332

PATIENT
  Age: 63 Year
  Sex: Male
  Weight: 84.7 kg

DRUGS (1)
  1. DEFITELIO [Suspect]
     Active Substance: DEFIBROTIDE SODIUM
     Indication: VENOOCCLUSIVE DISEASE
     Dosage: UNKNOWN DOSAGE
     Route: 042
     Dates: start: 20150904, end: 20150922

REACTIONS (4)
  - Lower gastrointestinal haemorrhage [Recovered/Resolved]
  - Gastrooesophageal reflux disease [Unknown]
  - Death [Fatal]
  - Incorrect product administration duration [Unknown]

NARRATIVE: CASE EVENT DATE: 20150904
